FAERS Safety Report 18819564 (Version 1)
Quarter: 2021Q1

REPORT INFORMATION
  Report Type: Spontaneous
  Country: CA (occurrence: CA)
  Receive Date: 20210201
  Receipt Date: 20210201
  Transmission Date: 20210419
  Serious: Yes (Life-Threatening, Other)
  Sender: FDA-Public Use
  Company Number: CA-PFIZER INC-2021080942

PATIENT
  Age: 15 Year
  Sex: Male
  Weight: 65 kg

DRUGS (41)
  1. NYSTATIN. [Concomitant]
     Active Substance: NYSTATIN
     Dosage: UNK
  2. POLYETHYLENE GLYCOL 3350. [Concomitant]
     Active Substance: POLYETHYLENE GLYCOL 3350
     Dosage: UNK
  3. URSODEOXYCHOLIC ACID [Concomitant]
     Active Substance: URSODIOL
     Dosage: UNK
  4. CYCLOPHOSPHAMIDE. [Suspect]
     Active Substance: CYCLOPHOSPHAMIDE
     Indication: BONE MARROW TRANSPLANT
     Dosage: 3700 MG, UNK
     Route: 042
  5. CEFTAZIDIME. [Concomitant]
     Active Substance: CEFTAZIDIME
     Dosage: UNK
  6. LIDOCAINE. [Concomitant]
     Active Substance: LIDOCAINE
     Dosage: UNK
  7. METOCLOPRAMIDE. [Concomitant]
     Active Substance: METOCLOPRAMIDE
     Dosage: UNK
  8. OLANZAPINE. [Concomitant]
     Active Substance: OLANZAPINE
     Dosage: UNK
  9. METHOTREXATE SODIUM. [Suspect]
     Active Substance: METHOTREXATE SODIUM
     Indication: BONE MARROW TRANSPLANT
     Dosage: 9 MG, UNK
     Route: 042
  10. BETAMETHASONE. [Concomitant]
     Active Substance: BETAMETHASONE
     Dosage: UNK
  11. DIMENHYDRINATE. [Concomitant]
     Active Substance: DIMENHYDRINATE
     Dosage: UNK
  12. FAMCICLOVIR. [Concomitant]
     Active Substance: FAMCICLOVIR
     Dosage: UNK
  13. FOSCAVIR [Concomitant]
     Active Substance: FOSCARNET SODIUM
     Dosage: UNK
  14. MESNA. [Concomitant]
     Active Substance: MESNA
     Dosage: UNK
  15. ONDANSETRON [Concomitant]
     Active Substance: ONDANSETRON
     Dosage: UNK
  16. ZINC. [Concomitant]
     Active Substance: ZINC
     Dosage: UNK
  17. RABBIT ANTI HUMAN THYMOCYTE IMMUNOGLOBULIN [Suspect]
     Active Substance: LAPINE T-LYMPHOCYTE IMMUNE GLOBULIN
     Indication: BONE MARROW TRANSPLANT
     Dosage: 120 MG, 1X/DAY
     Route: 042
  18. AMITRIPTYLINE [Concomitant]
     Active Substance: AMITRIPTYLINE
     Dosage: UNK
  19. CETIRIZINE [Concomitant]
     Active Substance: CETIRIZINE HYDROCHLORIDE
     Dosage: UNK
  20. EPINEPHRINE. [Concomitant]
     Active Substance: EPINEPHRINE
     Dosage: UNK
  21. CICLOSPORIN [Suspect]
     Active Substance: CYCLOSPORINE
     Indication: BONE MARROW TRANSPLANT
     Dosage: 250 MG, 1X/DAY
     Route: 048
  22. CICLOSPORIN [Suspect]
     Active Substance: CYCLOSPORINE
     Dosage: 120 MG, UNK
     Route: 042
  23. AMLODIPINE [Concomitant]
     Active Substance: AMLODIPINE BESYLATE
     Dosage: UNK
  24. CALCIUM + VITAMIN D3 [Concomitant]
     Active Substance: CALCIUM CARBONATE\CHOLECALCIFEROL
     Dosage: UNK
  25. DIPHENHYDRAMINE. [Concomitant]
     Active Substance: DIPHENHYDRAMINE
     Dosage: UNK
  26. HEPARIN CALCIUM [Concomitant]
     Active Substance: HEPARIN CALCIUM
     Dosage: UNK
  27. LORAZEPAM. [Concomitant]
     Active Substance: LORAZEPAM
     Dosage: UNK
  28. MAGNESIUM [Concomitant]
     Active Substance: MAGNESIUM
     Dosage: UNK
  29. POTASSIUM [Concomitant]
     Active Substance: POTASSIUM
     Dosage: UNK
  30. RANITIDINE. [Concomitant]
     Active Substance: RANITIDINE
     Dosage: UNK
  31. HYDROCORTISONE. [Concomitant]
     Active Substance: HYDROCORTISONE
     Dosage: UNK
  32. PENTAMIDINE ISETHIONATE. [Concomitant]
     Active Substance: PENTAMIDINE ISETHIONATE
     Dosage: UNK
  33. PREDNISONE. [Concomitant]
     Active Substance: PREDNISONE
     Dosage: UNK
  34. CHOLECALCIFEROL [Concomitant]
     Active Substance: CHOLECALCIFEROL
     Dosage: UNK
  35. FLUCONAZOLE. [Concomitant]
     Active Substance: FLUCONAZOLE
     Dosage: UNK
  36. FUROSEMIDE. [Concomitant]
     Active Substance: FUROSEMIDE
     Dosage: UNK
  37. METHYLPREDNISOLONE [METHYLPREDNISOLONE ACETATE] [Concomitant]
     Active Substance: METHYLPREDNISOLONE ACETATE
     Dosage: UNK
  38. VANCOMYCIN [Concomitant]
     Active Substance: VANCOMYCIN
     Dosage: UNK
  39. ATROPINE. [Concomitant]
     Active Substance: ATROPINE
     Dosage: UNK
  40. CHLORHEXIDINE [Concomitant]
     Active Substance: CHLORHEXIDINE
     Dosage: UNK
  41. MUPIROCIN. [Concomitant]
     Active Substance: MUPIROCIN
     Dosage: UNK

REACTIONS (4)
  - Stomatitis [Recovered/Resolved]
  - Pyrexia [Recovered/Resolved]
  - Off label use [Unknown]
  - Aplasia [Recovered/Resolved]
